FAERS Safety Report 15189330 (Version 1)
Quarter: 2018Q3

REPORT INFORMATION
  Report Type: Other
  Country: IT (occurrence: IT)
  Receive Date: 20180724
  Receipt Date: 20180724
  Transmission Date: 20181010
  Serious: Yes (Hospitalization, Other)
  Sender: FDA-Public Use
  Company Number: IT-APOTEX-2018AP017674

PATIENT
  Age: 52 Year
  Sex: Male

DRUGS (5)
  1. IMOVANE [Suspect]
     Active Substance: ZOPICLONE
     Indication: INTENTIONAL SELF-INJURY
     Dosage: UNK,40 IN TOTAL
     Route: 048
     Dates: start: 20180122, end: 20180122
  2. LOSARTAN. [Suspect]
     Active Substance: LOSARTAN
     Indication: INTENTIONAL SELF-INJURY
     Dosage: UNK,26 IN TOTAL
     Route: 048
     Dates: start: 20180122, end: 20180122
  3. ATENOLOL. [Suspect]
     Active Substance: ATENOLOL
     Indication: INTENTIONAL SELF-INJURY
     Dosage: UNK,8 IN TOTAL
     Route: 048
     Dates: start: 20180122, end: 20180122
  4. QUETIAPINE. [Suspect]
     Active Substance: QUETIAPINE
     Indication: INTENTIONAL SELF-INJURY
     Dosage: UNK, 20 IN TOTAL
     Route: 048
     Dates: start: 20180122, end: 20180122
  5. DEPAKIN [Suspect]
     Active Substance: VALPROATE SODIUM
     Indication: INTENTIONAL SELF-INJURY
     Dosage: UNK,8 IN TOTAL
     Route: 048
     Dates: start: 20180122, end: 20180122

REACTIONS (6)
  - Intentional overdose [Recovered/Resolved]
  - Coma scale abnormal [Recovered/Resolved]
  - Oxygen saturation decreased [Recovered/Resolved]
  - Myoglobin blood increased [Recovered/Resolved]
  - Sopor [Recovered/Resolved]
  - Hypotension [Recovered/Resolved]

NARRATIVE: CASE EVENT DATE: 20180123
